FAERS Safety Report 23834883 (Version 1)
Quarter: 2024Q2

REPORT INFORMATION
  Report Type: Spontaneous
  Country: None (occurrence: US)
  Receive Date: 20240509
  Receipt Date: 20240509
  Transmission Date: 20240715
  Serious: Yes (Other)
  Sender: FDA-Public Use
  Company Number: US-MELINTA THERAPEUTICS, LLC-US-MLNT-24-00245

PATIENT

DRUGS (1)
  1. KIMYRSA [Suspect]
     Active Substance: ORITAVANCIN DIPHOSPHATE
     Indication: Product used for unknown indication
     Dosage: UNK
     Route: 041

REACTIONS (1)
  - Thrombosis [Unknown]
